FAERS Safety Report 13585821 (Version 2)
Quarter: 2017Q2

REPORT INFORMATION
  Report Type: Spontaneous
  Country: US (occurrence: US)
  Receive Date: 20170526
  Receipt Date: 20170613
  Transmission Date: 20170830
  Serious: Yes (Other)
  Sender: FDA-Public Use
  Company Number: US-PFIZER INC-2017231542

PATIENT
  Age: 81 Year
  Sex: Female

DRUGS (3)
  1. LORAZEPAM. [Suspect]
     Active Substance: LORAZEPAM
     Indication: ESSENTIAL TREMOR
     Dosage: EVERY 4 HR TO 6 HR, WITH AN AVERAGE DAILY INTAKE OF ABOUT 6 MG
  2. LEXAPRO [Concomitant]
     Active Substance: ESCITALOPRAM OXALATE
     Dosage: UNK
  3. LORAZEPAM. [Suspect]
     Active Substance: LORAZEPAM
     Dosage: 6 MG, DAILY (EVENTUALLY PROGRESSED TO TAKING IN EXCESS OF 6 MG)

REACTIONS (1)
  - Dementia [Recovered/Resolved with Sequelae]
